FAERS Safety Report 10151508 (Version 1)
Quarter: 2014Q2

REPORT INFORMATION
  Report Type: Spontaneous
  Country: GB (occurrence: GB)
  Receive Date: 20140503
  Receipt Date: 20140503
  Transmission Date: 20141212
  Serious: Yes (Other)
  Sender: FDA-Public Use
  Company Number: GB-MALLINCKRODT-T201402067

PATIENT
  Age: 51 Year
  Sex: Male

DRUGS (1)
  1. OFIRMEV [Suspect]
     Indication: HEAD INJURY
     Dosage: 1 GRAM 4/1 DAY
     Route: 042
     Dates: start: 20140301, end: 20140303

REACTIONS (1)
  - Metabolic acidosis [Recovered/Resolved]
